FAERS Safety Report 10040648 (Version 1)
Quarter: 2014Q1

REPORT INFORMATION
  Report Type: Spontaneous
  Country: US (occurrence: US)
  Receive Date: 20140327
  Receipt Date: 20140327
  Transmission Date: 20141002
  Serious: No
  Sender: FDA-Public Use
  Company Number: US-GLAXOSMITHKLINE-A1057872A

PATIENT
  Sex: Female

DRUGS (2)
  1. DABRAFENIB [Suspect]
     Indication: PRODUCT USED FOR UNKNOWN INDICATION
     Route: 048
     Dates: start: 201401, end: 201401
  2. NO CONCURRENT MEDICATION [Concomitant]

REACTIONS (2)
  - Weight increased [Unknown]
  - Joint swelling [Unknown]
